FAERS Safety Report 9438428 (Version 1)
Quarter: 2013Q3

REPORT INFORMATION
  Report Type: Spontaneous
  Country: US (occurrence: US)
  Receive Date: 20130802
  Receipt Date: 20130802
  Transmission Date: 20140515
  Serious: No
  Sender: FDA-Public Use
  Company Number: US-BRISTOL-MYERS SQUIBB COMPANY-17268483

PATIENT
  Age: 59 Year
  Sex: Male
  Weight: 128.34 kg

DRUGS (13)
  1. COUMADIN TABS 2 MG [Suspect]
     Indication: THROMBOSIS
     Dosage: TAKES 21/2 COUMADIN 2MG TABLETS BID?FROM 28DEC2012: COUMADIN 5MG/ORANGE TABLETS.
     Dates: start: 20130103
  2. METFORMIN HCL [Concomitant]
  3. GLYBURIDE [Concomitant]
  4. ENALAPRIL [Concomitant]
  5. NORVASC [Concomitant]
  6. NEURONTIN [Concomitant]
  7. VITAMIN C [Concomitant]
  8. VITAMIN E [Concomitant]
  9. VITAMIN B12 [Concomitant]
  10. GARLIC [Concomitant]
  11. CALCIUM [Concomitant]
  12. MAGNESIUM [Concomitant]
  13. ZINC [Concomitant]

REACTIONS (1)
  - Abnormal sensation in eye [Recovered/Resolved]
